FAERS Safety Report 24722145 (Version 1)
Quarter: 2024Q4

REPORT INFORMATION
  Report Type: Spontaneous
  Country: ES (occurrence: ES)
  Receive Date: 20241211
  Receipt Date: 20241211
  Transmission Date: 20250115
  Serious: Yes (Other)
  Sender: MERCK
  Company Number: ES-009507513-2409ESP002262

PATIENT
  Age: 62 Year
  Sex: Male

DRUGS (2)
  1. PEMBROLIZUMAB [Suspect]
     Active Substance: PEMBROLIZUMAB
     Indication: Squamous cell carcinoma of lung
     Dosage: UNK, CYCLICAL (4 CYCLES)
     Dates: start: 202103
  2. PEMBROLIZUMAB [Suspect]
     Active Substance: PEMBROLIZUMAB
     Indication: Non-small cell lung cancer metastatic

REACTIONS (4)
  - Immune-mediated arthritis [Unknown]
  - Sarcoid-like reaction [Unknown]
  - Mesenteric panniculitis [Recovered/Resolved]
  - Mesenteric panniculitis [Unknown]
